FAERS Safety Report 7597023-0 (Version None)
Quarter: 2011Q3

REPORT INFORMATION
  Report Type: 
  Country: None (occurrence: None)
  Receive Date: 20110708
  Receipt Date: 20110628
  Transmission Date: 20111222
  Serious: Yes (Other)
  Sender: FDA-Public Use
  Company Number: US-GENZYME-THYM-1002576

PATIENT

DRUGS (2)
  1. THYMOGLOBULIN [Suspect]
  2. THYMOGLOBULIN [Suspect]
     Indication: TRANSPLANT REJECTION
     Dosage: UNK
     Dates: start: 20110501

REACTIONS (2)
  - TRANSPLANT REJECTION [None]
  - THERAPEUTIC RESPONSE DECREASED [None]
